FAERS Safety Report 12632003 (Version 2)
Quarter: 2016Q3

REPORT INFORMATION
  Report Type: Spontaneous
  Country: US (occurrence: US)
  Receive Date: 20160808
  Receipt Date: 20160808
  Transmission Date: 20161109
  Serious: No
  Sender: FDA-Public Use
  Company Number: US-BEH-2016061628

PATIENT
  Sex: Female
  Weight: 90 kg

DRUGS (11)
  1. ACETAMINOPHEN. [Concomitant]
     Active Substance: ACETAMINOPHEN
  2. EPIPEN [Concomitant]
     Active Substance: EPINEPHRINE
  3. HIZENTRA [Suspect]
     Active Substance: HUMAN IMMUNOGLOBULIN G
     Indication: HYPOGAMMAGLOBULINAEMIA
     Route: 058
  4. LIDOCAINE/PRILOCAINE [Concomitant]
     Active Substance: LIDOCAINE\PRILOCAINE
  5. SPIRIVA [Concomitant]
     Active Substance: TIOTROPIUM BROMIDE MONOHYDRATE
  6. VENTOLIN [Concomitant]
     Active Substance: ALBUTEROL SULFATE
  7. DIPHENHYDRAMINE. [Concomitant]
     Active Substance: DIPHENHYDRAMINE
  8. METFORMIN [Concomitant]
     Active Substance: METFORMIN HYDROCHLORIDE
  9. METOPROLOL SUCC ER [Concomitant]
     Active Substance: METOPROLOL SUCCINATE
  10. ADVAIR HFA [Concomitant]
     Active Substance: FLUTICASONE PROPIONATE\SALMETEROL XINAFOATE
  11. GLYBURIDE. [Concomitant]
     Active Substance: GLYBURIDE

REACTIONS (2)
  - Sinusitis [Unknown]
  - Bronchitis [Unknown]
